FAERS Safety Report 5031221-5 (Version None)
Quarter: 2006Q2

REPORT INFORMATION
  Report Type: 
  Country: None (occurrence: None)
  Receive Date: 20060621
  Receipt Date: 20060405
  Transmission Date: 20061013
  Serious: Yes (Other)
  Sender: FDA-Public Use
  Company Number: 200613505US

PATIENT
  Age: 62 Year
  Sex: Male

DRUGS (2)
  1. AVANDARYL [Suspect]
     Route: 048
  2. ALLERGY SHOTS [Concomitant]
     Indication: DRUG USE FOR UNKNOWN INDICATION
     Route: 065

REACTIONS (1)
  - HYPOGLYCAEMIA [None]
